FAERS Safety Report 5862741-9 (Version None)
Quarter: 2008Q3

REPORT INFORMATION
  Report Type: 
  Country: None (occurrence: None)
  Receive Date: 20080827
  Receipt Date: 20080827
  Transmission Date: 20090109
  Serious: No
  Sender: FDA-Public Use
  Company Number: None

PATIENT
  Sex: Female
  Weight: 76.2043 kg

DRUGS (2)
  1. LEVAQUIN [Suspect]
     Indication: INFECTION
     Dosage: ONE TABLET ONCE A DAY PO
     Route: 048
     Dates: start: 20080628, end: 20080706
  2. LEVAQUIN [Suspect]
     Indication: SEROMA
     Dosage: ONE TABLET ONCE A DAY PO
     Route: 048
     Dates: start: 20080628, end: 20080706

REACTIONS (6)
  - ARTHRALGIA [None]
  - GROIN PAIN [None]
  - IMPAIRED WORK ABILITY [None]
  - MOBILITY DECREASED [None]
  - MUSCULOSKELETAL PAIN [None]
  - PAIN IN EXTREMITY [None]
